FAERS Safety Report 21816154 (Version 1)
Quarter: 2023Q1

REPORT INFORMATION
  Report Type: Spontaneous
  Country: US (occurrence: None)
  Receive Date: 20230103
  Receipt Date: 20230103
  Transmission Date: 20230417
  Serious: No
  Sender: FDA-Public Use
  Company Number: None

PATIENT
  Age: 57 Year
  Sex: Female

DRUGS (1)
  1. TERIPARATIDE [Suspect]
     Active Substance: TERIPARATIDE
     Dosage: 20MCG DAILY SUBCUTANEOUS
     Route: 058
     Dates: start: 202208

REACTIONS (2)
  - Post transplant lymphoproliferative disorder [None]
  - Neoplasm malignant [None]

NARRATIVE: CASE EVENT DATE: 20230103
